FAERS Safety Report 6535582-7 (Version None)
Quarter: 2010Q1

REPORT INFORMATION
  Report Type: 
  Country: None (occurrence: None)
  Receive Date: 20100111
  Receipt Date: 20100111
  Transmission Date: 20100710
  Serious: No
  Sender: FDA-Public Use
  Company Number: None

PATIENT
  Sex: Male
  Weight: 89.8122 kg

DRUGS (2)
  1. ZICAM NASAL SPRAY OTC *ZICAM [Suspect]
     Indication: NASAL CONGESTION
     Dosage: ONCE MORNINGS NASAL
     Route: 045
     Dates: start: 20090601, end: 20090815
  2. ZICAM NASAL SPRAY OTC *ZICAM [Suspect]
     Indication: SEASONAL ALLERGY
     Dosage: ONCE MORNINGS NASAL
     Route: 045
     Dates: start: 20090601, end: 20090815

REACTIONS (1)
  - ANOSMIA [None]
